FAERS Safety Report 13881468 (Version 3)
Quarter: 2018Q1

REPORT INFORMATION
  Report Type: Spontaneous
  Country: US (occurrence: US)
  Receive Date: 20170818
  Receipt Date: 20180302
  Transmission Date: 20180508
  Serious: Yes (Hospitalization)
  Sender: FDA-Public Use
  Company Number: US-PFIZER INC-2017356550

PATIENT
  Age: 59 Year
  Sex: Female
  Weight: 51.25 kg

DRUGS (1)
  1. LYRICA [Suspect]
     Active Substance: PREGABALIN
     Indication: FIBROMYALGIA
     Dosage: 150 MG, 2X/DAY
     Dates: start: 2015

REACTIONS (6)
  - Influenza [Recovered/Resolved]
  - Malaise [Recovering/Resolving]
  - Laryngitis [Unknown]
  - Cough [Unknown]
  - Cataract [Unknown]
  - Hypersensitivity [Unknown]
